FAERS Safety Report 14245959 (Version 2)
Quarter: 2018Q4

REPORT INFORMATION
  Report Type: Spontaneous
  Country: FR (occurrence: FR)
  Receive Date: 20171204
  Receipt Date: 20181024
  Transmission Date: 20190204
  Serious: Yes (Other)
  Sender: FDA-Public Use
  Company Number: FR-MERCK KGAA-2036528

PATIENT
  Age: 54 Year
  Sex: Female

DRUGS (2)
  1. EUTHYROX [Suspect]
     Active Substance: LEVOTHYROXINE SODIUM
     Indication: POST PROCEDURAL HYPOTHYROIDISM
     Dates: start: 201705
  2. EUTHYROX [Suspect]
     Active Substance: LEVOTHYROXINE SODIUM

REACTIONS (28)
  - Hyperthyroidism [Recovered/Resolved]
  - Decreased activity [Recovered/Resolved]
  - Hot flush [Recovered/Resolved]
  - Weight decreased [Recovered/Resolved]
  - Insomnia [Recovered/Resolved]
  - Thyroxine free increased [None]
  - Asthenia [Recovered/Resolved]
  - Arthralgia [Recovered/Resolved]
  - Mood swings [Recovered/Resolved]
  - Diarrhoea [Recovered/Resolved]
  - Bone pain [Recovered/Resolved]
  - Heart rate increased [Recovered/Resolved]
  - Nervousness [Recovered/Resolved]
  - Blood thyroid stimulating hormone decreased [None]
  - Emotional distress [Recovered/Resolved]
  - Affect lability [Recovered/Resolved]
  - Depression [Recovered/Resolved]
  - Sleep disorder [Recovered/Resolved]
  - Thyroglobulin decreased [None]
  - Dyspepsia [Recovered/Resolved]
  - Myalgia [Recovered/Resolved]
  - Muscle spasms [Recovered/Resolved]
  - Headache [Recovered/Resolved]
  - Alopecia [Recovered/Resolved]
  - Dry skin [Recovered/Resolved]
  - Fatigue [Recovered/Resolved]
  - Libido decreased [Recovered/Resolved]
  - Psychomotor hyperactivity [Recovered/Resolved]

NARRATIVE: CASE EVENT DATE: 2017
